FAERS Safety Report 6437947-0 (Version None)
Quarter: 2009Q4

REPORT INFORMATION
  Report Type: 
  Country: None (occurrence: None)
  Receive Date: 20091112
  Receipt Date: 20081105
  Transmission Date: 20100525
  Serious: No
  Sender: FDA-Public Use
  Company Number: US-ASTRAZENECA-2009UW16246

PATIENT
  Sex: Female

DRUGS (4)
  1. PRILOSEC OTC [Suspect]
     Indication: DYSPEPSIA
     Dosage: 1 TABLET, 1 /DAY
     Route: 048
     Dates: start: 20071105, end: 20080805
  2. OSTEO BI-FLEX [Concomitant]
     Dosage: UNKNOWN
  3. CHOLESTEROL AND TRIGLYCERIDE REDUCERS [Concomitant]
     Dosage: UNKNOWN
  4. ANTIHYPERTENSIVES [Concomitant]
     Dosage: UNKNOWN

REACTIONS (2)
  - ALOPECIA [None]
  - INCORRECT DRUG ADMINISTRATION DURATION [None]
